FAERS Safety Report 23367819 (Version 1)
Quarter: 2024Q1

REPORT INFORMATION
  Report Type: Spontaneous
  Country: ES (occurrence: ES)
  Receive Date: 20240104
  Receipt Date: 20240104
  Transmission Date: 20240410
  Serious: Yes (Other)
  Sender: FDA-Public Use
  Company Number: None

PATIENT
  Age: 48 Year
  Sex: Male
  Weight: 77 kg

DRUGS (3)
  1. TREMFYA [Suspect]
     Active Substance: GUSELKUMAB
     Indication: Hidradenitis
     Dosage: TREMFYA 100 0, 4SEM, 8SEM, CADA 8 SEM
     Route: 058
     Dates: start: 20211221, end: 20231221
  2. TREMFYA [Suspect]
     Active Substance: GUSELKUMAB
  3. ACITRETIN [Concomitant]
     Active Substance: ACITRETIN
     Indication: Hidradenitis
     Dosage: ACITRETINA 20 MG DIA
     Route: 048
     Dates: start: 20211221

REACTIONS (1)
  - Renal cell carcinoma [Recovering/Resolving]

NARRATIVE: CASE EVENT DATE: 20231127
